FAERS Safety Report 10801613 (Version 1)
Quarter: 2015Q1

REPORT INFORMATION
  Report Type: Spontaneous
  Country: AE (occurrence: GB)
  Receive Date: 20150217
  Receipt Date: 20150217
  Transmission Date: 20150721
  Serious: Yes (Other)
  Sender: FDA-Public Use
  Company Number: AE-CIPLA LTD.-2015GB01114

PATIENT

DRUGS (1)
  1. AMLODIPINE [Suspect]
     Active Substance: AMLODIPINE BESYLATE
     Dosage: 10 MG
     Route: 048
     Dates: start: 2012

REACTIONS (2)
  - Gingival hyperplasia [Not Recovered/Not Resolved]
  - Blood pressure increased [Not Recovered/Not Resolved]
